FAERS Safety Report 16923892 (Version 2)
Quarter: 2019Q4

REPORT INFORMATION
  Report Type: Spontaneous
  Country: SE (occurrence: SE)
  Receive Date: 20191016
  Receipt Date: 20191223
  Transmission Date: 20200122
  Serious: Yes (Hospitalization)
  Sender: FDA-Public Use
  Company Number: SE-ACCORD-158095

PATIENT
  Age: 79 Year
  Sex: Female

DRUGS (15)
  1. LOCERYL [Concomitant]
     Active Substance: AMOROLFINE HYDROCHLORIDE
     Dosage: 5% MEDICAL NAIL POLISH, DOSE : 1
     Dates: start: 20180124
  2. ELIQUIS [Concomitant]
     Active Substance: APIXABAN
     Dosage: 2.5 MG
     Dates: start: 20190801
  3. BUVENTOL EASYHALER [Concomitant]
     Active Substance: ALBUTEROL SULFATE
     Dosage: 200 MICROGRAMS / DOSE INHALATION POWDER
     Dates: start: 20190620
  4. PANOCOD [Concomitant]
     Active Substance: ACETAMINOPHEN\CODEINE PHOSPHATE
     Dosage: 500 MG / 30 MG
     Dates: start: 20180124
  5. SIMVASTATIN. [Suspect]
     Active Substance: SIMVASTATIN
     Indication: PRODUCT USED FOR UNKNOWN INDICATION
     Dates: end: 201908
  6. OPARAP [Concomitant]
     Dosage: 500 MG
     Dates: start: 20180124
  7. CLOPIDOGREL [Concomitant]
     Active Substance: CLOPIDOGREL BISULFATE
     Dates: start: 20190806
  8. FELODIPINE. [Concomitant]
     Active Substance: FELODIPINE
  9. CANDESARTAN/CANDESARTAN CILEXETIL [Concomitant]
     Active Substance: CANDESARTAN
  10. BRALTUS [Concomitant]
     Active Substance: TIOTROPIUM BROMIDE
     Dosage: 10 MICROGRAMS / DOSE
     Dates: start: 20190620
  11. METOPROLOL. [Concomitant]
     Active Substance: METOPROLOL
  12. GABAPENTIN 1A PHARMA [Concomitant]
     Active Substance: GABAPENTIN
     Dosage: 100 MG
     Dates: start: 20190513
  13. FURIX [Concomitant]
     Dates: start: 20190729
  14. TROMBYL [Concomitant]
     Active Substance: ASPIRIN
     Dates: start: 20180125
  15. ATROVENT [Concomitant]
     Active Substance: IPRATROPIUM BROMIDE
     Dosage: VB, NEBULISER SOLUTION IN SINGLE-DOSE CONTAINERS
     Route: 055
     Dates: start: 20190728

REACTIONS (2)
  - Asthenia [Recovered/Resolved]
  - Balance disorder [Recovered/Resolved]

NARRATIVE: CASE EVENT DATE: 20190814
